FAERS Safety Report 14273299 (Version 2)
Quarter: 2017Q4

REPORT INFORMATION
  Report Type: Spontaneous
  Country: IL (occurrence: IL)
  Receive Date: 20171211
  Receipt Date: 20171222
  Transmission Date: 20180321
  Serious: Yes (Other)
  Sender: FDA-Public Use
  Company Number: IL-APOPHARMA-2017AP022262

PATIENT
  Age: 9 Year
  Sex: Male
  Weight: 30 kg

DRUGS (1)
  1. FERRIPROX [Suspect]
     Active Substance: DEFERIPRONE
     Indication: CONGENITAL ANAEMIA
     Dosage: 25 MG/KG, BID
     Route: 048
     Dates: start: 201511, end: 201711

REACTIONS (1)
  - Hyperpyrexia [Recovering/Resolving]
